FAERS Safety Report 16143772 (Version 1)
Quarter: 2019Q2

REPORT INFORMATION
  Report Type: Spontaneous
  Country: US (occurrence: US)
  Receive Date: 20190401
  Receipt Date: 20190401
  Transmission Date: 20190711
  Serious: Yes (Hospitalization, Other)
  Sender: FDA-Public Use
  Company Number: US-TASMAN PHARMA, INC.-2019TSM00019

PATIENT
  Age: 69 Year
  Sex: Male

DRUGS (4)
  1. CLOZAPINE. [Suspect]
     Active Substance: CLOZAPINE
     Indication: SCHIZOPHRENIA
     Dosage: 50 MG NIGHTLY
     Route: 065
  2. QUETIAPINE. [Concomitant]
     Active Substance: QUETIAPINE
     Indication: SCHIZOPHRENIA
     Dosage: TO BE TAPERED AND THEN STOPPED
     Route: 065
  3. CLOZAPINE. [Suspect]
     Active Substance: CLOZAPINE
     Dosage: INCREASED TO 200 MG NIGHTLY IN 50 MG INCREMENTS EVERY 7-11 DAYS
  4. CLOZAPINE. [Suspect]
     Active Substance: CLOZAPINE
     Dosage: 200 MG NIGHTLY

REACTIONS (6)
  - Atrial fibrillation [Recovered/Resolved]
  - Pleural effusion [Recovered/Resolved]
  - Sepsis [Recovered/Resolved]
  - Unresponsive to stimuli [Recovered/Resolved]
  - Agranulocytosis [Recovered/Resolved]
  - Pneumonia [Recovered/Resolved]
